FAERS Safety Report 23466392 (Version 2)
Quarter: 2024Q2

REPORT INFORMATION
  Report Type: Report from Study
  Country: IQ (occurrence: IQ)
  Receive Date: 20240201
  Receipt Date: 20240423
  Transmission Date: 20240716
  Serious: Yes (Other)
  Sender: FDA-Public Use
  Company Number: IQ-BAYER-2024A016910

PATIENT
  Age: 63 Year
  Sex: Female

DRUGS (1)
  1. EYLEA [Suspect]
     Active Substance: AFLIBERCEPT
     Indication: Diabetic retinal oedema
     Dosage: 6TH DOSE, INJECT, MONTHLY, BOTH EYES; SOLUTION FOR INJECTION; 40 MG/ML
     Dates: start: 202308, end: 20240127

REACTIONS (2)
  - Visual impairment [Recovering/Resolving]
  - Retinal haemorrhage [Recovering/Resolving]

NARRATIVE: CASE EVENT DATE: 20230801
